FAERS Safety Report 7203362-5 (Version None)
Quarter: 2010Q4

REPORT INFORMATION
  Report Type: 
  Country: None (occurrence: None)
  Receive Date: 20101216
  Receipt Date: 20101202
  Transmission Date: 20110411
  Serious: Yes (Other)
  Sender: FDA-Public Use
  Company Number: 2010MA003884

PATIENT
  Age: 27 Year
  Sex: Male

DRUGS (13)
  1. IBUPROFEN [Suspect]
     Indication: INTENTIONAL OVERDOSE
     Dosage: ;X1;
     Dates: start: 20020820, end: 20020820
  2. CODEINE (CODEINE) [Suspect]
     Dates: start: 20020820
  3. PAROXETINE HCL [Suspect]
     Indication: PHOBIA
     Dosage: 20 MG; BID;
     Dates: start: 19990901, end: 20021201
  4. NUROFEN (IBUPROFEN) [Suspect]
     Dates: start: 20020820
  5. LOFEPRAMINE (LOFEPRAMINE) [Suspect]
  6. ASPIRIN [Suspect]
  7. ANADIN IBUPROFEN (NO PREF. NAME) [Suspect]
     Dates: start: 20020820, end: 20020820
  8. COCAINE [Concomitant]
  9. METHYLENEDIOXYMETHAMPHETAMIN [Concomitant]
  10. FLUOXETINE [Concomitant]
  11. LITHIUM CARBONATE [Concomitant]
  12. PROZAC [Concomitant]
  13. VENLAFAXINE [Concomitant]

REACTIONS (8)
  - AGGRESSION [None]
  - ALCOHOL USE [None]
  - DRUG ABUSE [None]
  - INTENTIONAL DRUG MISUSE [None]
  - MULTIPLE DRUG OVERDOSE INTENTIONAL [None]
  - SEXUAL DYSFUNCTION [None]
  - SOCIAL PHOBIA [None]
  - SUICIDAL IDEATION [None]
